FAERS Safety Report 7767366-6 (Version None)
Quarter: 2011Q3

REPORT INFORMATION
  Report Type: 
  Country: None (occurrence: None)
  Receive Date: 20110922
  Receipt Date: 20100830
  Transmission Date: 20111222
  Serious: No
  Sender: FDA-Public Use
  Company Number: US-ASTRAZENECA-2006UW22062

PATIENT
  Age: 59 Year
  Sex: Female
  Weight: 49.9 kg

DRUGS (17)
  1. SEROQUEL [Suspect]
     Indication: ANXIETY
     Dosage: 200 TO 1000 MG
     Route: 048
     Dates: start: 19980101, end: 20060201
  2. PROZAC [Concomitant]
     Dates: start: 20000501
  3. KLONOPIN [Concomitant]
     Dosage: 1-2 MG AT NIGHT
     Route: 048
     Dates: start: 20020520
  4. SEROQUEL [Suspect]
     Route: 048
     Dates: start: 20020619
  5. SEROQUEL [Suspect]
     Route: 048
     Dates: start: 20020619
  6. ZYPREXA [Concomitant]
     Dosage: 7.5MG-20MG
     Route: 048
     Dates: start: 19991213
  7. PROZAC [Concomitant]
     Dosage: 20-80MG
     Route: 048
     Dates: start: 19990920
  8. IMURAN [Concomitant]
     Dosage: 50MG-100MG
     Dates: start: 20030107
  9. PREDNISONE [Concomitant]
     Dates: start: 20020101
  10. SEROQUEL [Suspect]
     Indication: BIPOLAR DISORDER
     Dosage: 200 TO 1000 MG
     Route: 048
     Dates: start: 19980101, end: 20060201
  11. SEROQUEL [Suspect]
     Dosage: 50MG-1000MG
     Route: 048
     Dates: start: 19991213
  12. ASACOL [Concomitant]
     Dates: start: 20050310
  13. DESYREL [Concomitant]
     Dates: start: 20041214
  14. SEROQUEL [Suspect]
     Dosage: 50MG-1000MG
     Route: 048
     Dates: start: 19991213
  15. AVALIDE [Concomitant]
     Dosage: 300-12.5
     Dates: start: 20030308
  16. ZYPREXA [Concomitant]
     Indication: ANXIETY
     Dates: start: 19980101, end: 20050101
  17. HYOSCYAMINE ER [Concomitant]
     Dates: start: 20030210

REACTIONS (4)
  - TYPE 2 DIABETES MELLITUS [None]
  - BLOOD TRIGLYCERIDES INCREASED [None]
  - DIABETES MELLITUS [None]
  - DIABETIC COMPLICATION [None]
